FAERS Safety Report 23649021 (Version 2)
Quarter: 2024Q3

REPORT INFORMATION
  Report Type: Spontaneous
  Country: SE (occurrence: SE)
  Receive Date: 20240319
  Receipt Date: 20240712
  Transmission Date: 20241017
  Serious: Yes (Hospitalization, Other)
  Sender: TEVA
  Company Number: None

PATIENT
  Age: 70 Year
  Sex: Female

DRUGS (4)
  1. RISPERIDONE [Suspect]
     Active Substance: RISPERIDONE
     Indication: Schizoaffective disorder
     Dosage: RISPERIDON
     Route: 065
  2. Temesta [Concomitant]
     Indication: Product used for unknown indication
     Dosage: 9 MG
     Route: 065
  3. ASPIRIN [Concomitant]
     Active Substance: ASPIRIN
     Indication: Product used for unknown indication
     Route: 065
     Dates: end: 202305
  4. NAPROXEN [Concomitant]
     Active Substance: NAPROXEN
     Indication: Product used for unknown indication
     Route: 065
     Dates: end: 202305

REACTIONS (4)
  - Hallucination, auditory [Unknown]
  - Drug ineffective [Unknown]
  - Hyperprolactinaemia [Unknown]
  - Delusion [Unknown]

NARRATIVE: CASE EVENT DATE: 20230101
